FAERS Safety Report 4349797-X (Version None)
Quarter: 2004Q2

REPORT INFORMATION
  Report Type: 
  Country: None (occurrence: None)
  Receive Date: 20040429
  Receipt Date: 20040312
  Transmission Date: 20050107
  Serious: Yes (Hospitalization)
  Sender: FDA-Public Use
  Company Number: DE-BRISTOL-MYERS SQUIBB COMPANY-12533006

PATIENT
  Age: 67 Year
  Sex: Female
  Weight: 70 kg

DRUGS (2)
  1. TAXOL [Suspect]
     Indication: OVARIAN CANCER
     Dosage: 1ST DOSE- 02-JAN-2004
     Route: 042
     Dates: start: 20040305, end: 20040305
  2. RIBOCARBO [Suspect]
     Indication: OVARIAN CANCER
     Dosage: 1ST DOSE - 02-JAN-2004
     Route: 042
     Dates: start: 20040305, end: 20040305

REACTIONS (2)
  - AGITATION [None]
  - NAUSEA [None]
